FAERS Safety Report 5510188-7 (Version None)
Quarter: 2007Q4

REPORT INFORMATION
  Report Type: 
  Country: None (occurrence: None)
  Receive Date: 20071108
  Receipt Date: 20071030
  Transmission Date: 20080405
  Serious: Yes (Hospitalization)
  Sender: FDA-Public Use
  Company Number: IT-ROCHE-447169

PATIENT
  Age: 57 Year
  Sex: Male

DRUGS (8)
  1. MYCOPHENOLATE MOFETIL [Suspect]
     Route: 048
     Dates: start: 20060125
  2. MYCOPHENOLATE MOFETIL [Suspect]
     Route: 048
  3. FK506 [Suspect]
     Route: 048
     Dates: start: 20060125
  4. FK506 [Suspect]
     Route: 048
  5. ALBUMIN (HUMAN) [Concomitant]
  6. BACTRIM [Concomitant]
  7. CIPROFLOXACIN [Concomitant]
  8. INSULIN [Concomitant]

REACTIONS (2)
  - BILE DUCT STENOSIS [None]
  - HEPATITIS C [None]
